FAERS Safety Report 8883966 (Version 2)
Quarter: 2013Q4

REPORT INFORMATION
  Report Type: Spontaneous
  Country: US (occurrence: US)
  Receive Date: 20121102
  Receipt Date: 20131030
  Transmission Date: 20140711
  Serious: No
  Sender: FDA-Public Use
  Company Number: US-ASTRAZENECA-2012SE25368

PATIENT
  Age: 79 Year
  Sex: Female
  Weight: 53.5 kg

DRUGS (4)
  1. CRESTOR [Suspect]
     Indication: BLOOD CHOLESTEROL INCREASED
     Route: 048
  2. CRESTOR [Suspect]
     Indication: LIPIDS ABNORMAL
     Route: 048
  3. CENTROID [Concomitant]
  4. PROTONIX [Concomitant]

REACTIONS (6)
  - Arthritis [Unknown]
  - Thyroid neoplasm [Unknown]
  - Arthralgia [Not Recovered/Not Resolved]
  - Pain in extremity [Not Recovered/Not Resolved]
  - Asthenia [Unknown]
  - Muscular weakness [Unknown]
